FAERS Safety Report 4522806-0 (Version None)
Quarter: 2004Q4

REPORT INFORMATION
  Report Type: 
  Country: None (occurrence: None)
  Receive Date: 20041207
  Receipt Date: 20041126
  Transmission Date: 20050328
  Serious: Yes (Hospitalization)
  Sender: FDA-Public Use
  Company Number: BRO-007982

PATIENT
  Age: 79 Year
  Sex: Female

DRUGS (1)
  1. IOPAMIDOL-300 [Suspect]
     Indication: COMPUTERISED TOMOGRAM
     Dosage: 150 ML IV
     Route: 042
     Dates: start: 20041029, end: 20041029

REACTIONS (1)
  - BRONCHOSPASM [None]
